FAERS Safety Report 7122231-2 (Version None)
Quarter: 2010Q4

REPORT INFORMATION
  Report Type: 
  Country: None (occurrence: None)
  Receive Date: 20101124
  Receipt Date: 20101111
  Transmission Date: 20110411
  Serious: Yes (Death, Life-Threatening, Hospitalization, Disabling)
  Sender: FDA-Public Use
  Company Number: CH-CELGENEUS-151-50794-09091831

PATIENT
  Sex: Female

DRUGS (8)
  1. VIDAZA [Suspect]
     Route: 058
     Dates: start: 20090706, end: 20090904
  2. PROPAMIDE [Concomitant]
     Route: 051
     Dates: start: 20090812, end: 20090820
  3. PIPERACILLINE [Concomitant]
     Route: 051
     Dates: start: 20090918
  4. METRONIDAZOLE [Concomitant]
     Route: 051
     Dates: start: 20090917
  5. FLAGYL [Concomitant]
     Route: 048
     Dates: start: 20090910, end: 20090918
  6. TREONAM [Concomitant]
     Route: 051
     Dates: start: 20090908, end: 20090918
  7. ARIXTRA [Concomitant]
     Route: 058
     Dates: start: 20090820
  8. CLARITHROMYCIN [Concomitant]
     Route: 048
     Dates: start: 20090908, end: 20090910

REACTIONS (3)
  - PULMONARY EMBOLISM [None]
  - RESPIRATORY FAILURE [None]
  - SEPTIC SHOCK [None]
